FAERS Safety Report 5739582-6 (Version None)
Quarter: 2008Q2

REPORT INFORMATION
  Report Type: 
  Country: None (occurrence: None)
  Receive Date: 20080513
  Receipt Date: 20080428
  Transmission Date: 20081010
  Serious: Yes (Congenital Anomaly)
  Sender: FDA-Public Use
  Company Number: S08-UKI-01706-02

PATIENT

DRUGS (6)
  1. CITALOPRAM HYDROBROMIDE [Suspect]
     Dosage: 10 MG QD TRANSPLACENTAL
     Route: 064
     Dates: start: 20070101, end: 20080101
  2. CLOTRIMAZOLE [Concomitant]
  3. ACETAMINOPHEN W/ CODEINE [Concomitant]
  4. IBUPROFEN [Concomitant]
  5. SODIUM ALGINATE [Concomitant]
  6. POTASSIUM BICARBONATE [Concomitant]

REACTIONS (4)
  - ABORTION INDUCED [None]
  - DRUG EXPOSURE DURING PREGNANCY [None]
  - MULTIPLE CONGENITAL ABNORMALITIES [None]
  - PREGNANCY [None]
